FAERS Safety Report 9099787 (Version 2)
Quarter: 2013Q1

REPORT INFORMATION
  Report Type: Spontaneous
  Country: CA (occurrence: CA)
  Receive Date: 20130208
  Receipt Date: 20130208
  Transmission Date: 20140127
  Serious: Yes (Death, Other)
  Sender: FDA-Public Use
  Company Number: CA-PFIZER INC-2013004524

PATIENT
  Age: 67 Year
  Sex: Female
  Weight: 68.4 kg

DRUGS (17)
  1. ZYVOXAM [Suspect]
     Dosage: 600 MG, 2X/DAY
     Route: 048
     Dates: start: 20121222, end: 20130101
  2. MAGIC MOUTHWASH [Concomitant]
     Dosage: 10 ML, 4X/DAY
  3. A535 RUB [Concomitant]
     Dosage: APPLY FOUR TIMES DAILY AS NEEDED
  4. HYDROMORPHONE [Concomitant]
     Dosage: 0.5 MG, EVERY 2 HOURS AS NEEDED
  5. HYDROMORPHONE CR [Concomitant]
     Dosage: 3 MG, EVERY 12 HOURS
  6. DILTIAZEM [Concomitant]
     Dosage: THREE TIMES DAILY
     Route: 061
  7. SALBUTAMOL [Concomitant]
     Dosage: 2 PUFFS FOUR TIMES DAILY
     Route: 055
  8. VITAMIN B12 [Concomitant]
     Dosage: 400 MCG, 1X/DAY
  9. SIMETHICONE [Concomitant]
     Dosage: 160 MG, 3X/DAY
  10. CRESTOR [Concomitant]
     Dosage: 10 MG, 1X/DAY
  11. QUININE [Concomitant]
     Dosage: 300 MG, 1X/DAY AT BEDTIME
  12. NITRO PATCH [Concomitant]
     Dosage: 0.2 MG/HR, APPLY FOR 12 HOURS
  13. PANTOLOC [Concomitant]
     Dosage: 40 MG, 2X/DAY
  14. TEMAZEPAM [Concomitant]
     Dosage: 15 MG, 1X/DAY AT BEDTIME
  15. REPLAVITE [Concomitant]
     Dosage: ONCE A DAY AT BEDTIME
  16. CALCIUM CARBONATE [Concomitant]
     Dosage: 625 MG, 3X/DAY WITH MEALS
  17. EPREX [Concomitant]
     Dosage: 8000 IU, 3X/DAY
     Route: 058

REACTIONS (2)
  - Death [Fatal]
  - Hypoglycaemia [Unknown]
